FAERS Safety Report 5707524-5 (Version None)
Quarter: 2008Q2

REPORT INFORMATION
  Report Type: 
  Country: None (occurrence: None)
  Receive Date: 20080416
  Receipt Date: 20080404
  Transmission Date: 20081010
  Serious: Yes (Other)
  Sender: FDA-Public Use
  Company Number: US-PFIZER INC-2007094361

PATIENT
  Sex: Male
  Weight: 113.4 kg

DRUGS (11)
  1. CHANTIX [Suspect]
     Indication: SMOKING CESSATION THERAPY
     Dates: start: 20071019, end: 20071020
  2. LISINOPRIL [Concomitant]
     Indication: HYPERTENSION
  3. SIMVASTATIN [Concomitant]
  4. HYDROCODONE BITARTRATE [Concomitant]
  5. TRAZODONE HCL [Concomitant]
  6. METOPROLOL TARTRATE [Concomitant]
     Indication: MYOCARDIAL INFARCTION
  7. METFORMIN HCL [Concomitant]
     Indication: DIABETES MELLITUS
  8. ACETYLSALICYLIC ACID SRT [Concomitant]
  9. ALLERGY MEDICATION [Concomitant]
     Indication: HYPERSENSITIVITY
  10. PREVACID [Concomitant]
  11. DIAZEPAM [Concomitant]
     Indication: DEPRESSION
     Dosage: FREQ:AS NEEDED

REACTIONS (7)
  - BALANCE DISORDER [None]
  - BLOOD GLUCOSE INCREASED [None]
  - FEELING ABNORMAL [None]
  - HYPERHIDROSIS [None]
  - IMPAIRED DRIVING ABILITY [None]
  - MALAISE [None]
  - MYOCARDIAL INFARCTION [None]
